FAERS Safety Report 9406986 (Version 2)
Quarter: 2013Q3

REPORT INFORMATION
  Report Type: Spontaneous
  Country: US (occurrence: US)
  Receive Date: 20130718
  Receipt Date: 20130725
  Transmission Date: 20140515
  Serious: Yes (Hospitalization, Other)
  Sender: FDA-Public Use
  Company Number: US-PFIZER INC-2013206344

PATIENT
  Age: 40 Year
  Sex: Female
  Weight: 75.28 kg

DRUGS (4)
  1. NEURONTIN [Suspect]
     Indication: FIBROMYALGIA
     Dosage: 800 MG, 3X/DAY
     Route: 048
  2. TRAMADOL HYDROCHLORIDE [Suspect]
     Indication: FIBROMYALGIA
     Dosage: 50 MG, 4X/DAY
  3. CYMBALTA [Suspect]
     Indication: FIBROMYALGIA
     Dosage: 60 MG, 1X/DAY
     Dates: start: 200909
  4. FLEXERIL [Concomitant]
     Indication: BACK PAIN
     Dosage: 30 MG, THREE 10 MG TABLETS DAILY
     Route: 048

REACTIONS (3)
  - Off label use [Unknown]
  - Fibromyalgia [Unknown]
  - Drug ineffective for unapproved indication [Unknown]
